FAERS Safety Report 19098825 (Version 1)
Quarter: 2021Q2

REPORT INFORMATION
  Report Type: Spontaneous
  Country: GB (occurrence: GB)
  Receive Date: 20210406
  Receipt Date: 20210406
  Transmission Date: 20210717
  Serious: Yes (Other)
  Sender: FDA-Public Use
  Company Number: GB-MYLANLABS-2021M1020428

PATIENT
  Age: 63 Year
  Sex: Female
  Weight: 69.85 kg

DRUGS (4)
  1. TAMOXIFEN CITRATE. [Concomitant]
     Active Substance: TAMOXIFEN CITRATE
     Dosage: UNK
  2. ATORVASTATIN CALCIUM. [Concomitant]
     Active Substance: ATORVASTATIN CALCIUM
     Dosage: UNK
  3. METFORMIN HYDROCHLORIDE. [Concomitant]
     Active Substance: METFORMIN HYDROCHLORIDE
     Indication: NEOPLASM MALIGNANT
     Dosage: UNK
  4. TRAMADOL. [Suspect]
     Active Substance: TRAMADOL
     Indication: BACK PAIN
     Dosage: 50 MILLIGRAM
     Route: 048
     Dates: start: 20210322, end: 20210322

REACTIONS (5)
  - Malaise [Recovering/Resolving]
  - Dizziness [Unknown]
  - Feeling abnormal [Unknown]
  - Mental impairment [Unknown]
  - Confusional state [Unknown]

NARRATIVE: CASE EVENT DATE: 20210322
